FAERS Safety Report 19977500 (Version 3)
Quarter: 2021Q4

REPORT INFORMATION
  Report Type: Spontaneous
  Country: CN (occurrence: None)
  Receive Date: 20211020
  Receipt Date: 20211123
  Transmission Date: 20220303
  Serious: Yes (Death, Life-Threatening, Hospitalization, Other)
  Sender: FDA-Public Use
  Company Number: 2021A756215

PATIENT
  Age: 88 Year
  Sex: Male

DRUGS (16)
  1. LYNPARZA [Suspect]
     Active Substance: OLAPARIB
     Indication: Neoplasm malignant
     Dosage: UNKNOWN
     Route: 048
     Dates: end: 20211003
  2. GLYCEROL FRUCTOSE SODIUM CHLORIDE INJECTION???NANGUANG) [Concomitant]
  3. DEXTROSE\SODIUM CHLORIDE [Concomitant]
     Active Substance: DEXTROSE\SODIUM CHLORIDE
  4. VITAMIN C INJECTION(GUANGZHOU) [Concomitant]
  5. VITAMIN B6 [Concomitant]
     Active Substance: PYRIDOXINE HYDROCHLORIDE
  6. SODIUM CHLORIDE [Concomitant]
     Active Substance: SODIUM CHLORIDE
  7. GINKGO BILOBA LEAF EXTRACT [Concomitant]
     Active Substance: GINKGO BILOBA LEAF EXTRACT
  8. ILAPRAZOLE [Concomitant]
     Active Substance: ILAPRAZOLE
  9. POTASSIUM CHLORIDE [Concomitant]
     Active Substance: POTASSIUM CHLORIDE
  10. CEFTAZIDIME [Concomitant]
     Active Substance: CEFTAZIDIME
  11. COMPOUND ELECTROLYTE GLUCOSE MG3 [Concomitant]
  12. REDUNING INJECTION [Concomitant]
  13. BETAMETHASONE SODIUM PHOSPHATE [Concomitant]
     Active Substance: BETAMETHASONE SODIUM PHOSPHATE
  14. MOXIFLOXACIN HYDROCHLORIDE [Concomitant]
     Active Substance: MOXIFLOXACIN HYDROCHLORIDE
  15. DESUZUMAB INJECTION [Concomitant]
  16. CHEMOTHERAPEUTIC DRUGS [Concomitant]

REACTIONS (21)
  - Pneumonia [Fatal]
  - Fatigue [Not Recovered/Not Resolved]
  - Vomiting [Not Recovered/Not Resolved]
  - Feeding disorder [Not Recovered/Not Resolved]
  - Somnolence [Not Recovered/Not Resolved]
  - Lethargy [Not Recovered/Not Resolved]
  - Pyrexia [Not Recovered/Not Resolved]
  - Seizure [Not Recovered/Not Resolved]
  - Abdominal wall disorder [Not Recovered/Not Resolved]
  - Diarrhoea [Not Recovered/Not Resolved]
  - Organ failure [Not Recovered/Not Resolved]
  - Abdominal distension [Not Recovered/Not Resolved]
  - Hepatic function abnormal [Not Recovered/Not Resolved]
  - Renal impairment [Not Recovered/Not Resolved]
  - Dyspnoea [Not Recovered/Not Resolved]
  - Gastroenteritis [Fatal]
  - Malignant neoplasm progression [Unknown]
  - Pneumonitis [Unknown]
  - Cerebral infarction [Fatal]
  - Epilepsy [Fatal]
  - Toxicity to various agents [Unknown]
